FAERS Safety Report 15778332 (Version 2)
Quarter: 2019Q1

REPORT INFORMATION
  Report Type: Spontaneous
  Country: CZ (occurrence: CZ)
  Receive Date: 20181231
  Receipt Date: 20190128
  Transmission Date: 20190417
  Serious: Yes (Hospitalization)
  Sender: FDA-Public Use
  Company Number: CZ-BAYER-2018-243428

PATIENT
  Sex: Male

DRUGS (2)
  1. XOFIGO [Suspect]
     Active Substance: RADIUM RA-223 DICHLORIDE
     Indication: HORMONE-REFRACTORY PROSTATE CANCER
     Dosage: EVERY 4 WEEKS
     Dates: start: 201710, end: 20180320
  2. XOFIGO [Suspect]
     Active Substance: RADIUM RA-223 DICHLORIDE
     Indication: METASTASIS

REACTIONS (7)
  - Fatigue [None]
  - Headache [None]
  - Weight decreased [Recovering/Resolving]
  - Asthenia [None]
  - Nausea [None]
  - Pain [Recovering/Resolving]
  - Diarrhoea [None]
